FAERS Safety Report 8812526 (Version 3)
Quarter: 2013Q3

REPORT INFORMATION
  Report Type: Report from Study
  Country: JP (occurrence: JP)
  Receive Date: 20120927
  Receipt Date: 20130822
  Transmission Date: 20140515
  Serious: Yes (Other)
  Sender: FDA-Public Use
  Company Number: JP-JNJFOC-20120910865

PATIENT
  Age: 48 Year
  Sex: Male
  Weight: 72 kg

DRUGS (24)
  1. STELARA [Suspect]
     Indication: PSORIASIS
     Route: 058
     Dates: start: 20120612, end: 20120612
  2. STELARA [Suspect]
     Indication: PSORIASIS
     Route: 058
     Dates: start: 20111118, end: 20111118
  3. STELARA [Suspect]
     Indication: PSORIASIS
     Route: 058
     Dates: start: 20110822, end: 20110822
  4. STELARA [Suspect]
     Indication: PSORIASIS
     Route: 058
     Dates: start: 20110520, end: 20110520
  5. STELARA [Suspect]
     Indication: PSORIASIS
     Route: 058
     Dates: start: 20120925, end: 20120925
  6. STELARA [Suspect]
     Indication: PSORIASIS
     Route: 058
     Dates: start: 20130104, end: 20130104
  7. STELARA [Suspect]
     Indication: PSORIASIS
     Route: 058
     Dates: start: 20130326, end: 20130326
  8. STELARA [Suspect]
     Indication: PSORIASIS
     Route: 058
     Dates: start: 20130620
  9. STELARA [Suspect]
     Indication: PSORIASIS
     Route: 058
     Dates: start: 20110420, end: 20110420
  10. STELARA [Suspect]
     Indication: PSORIASIS
     Route: 058
     Dates: start: 20120313, end: 20120313
  11. SAHNE [Concomitant]
     Indication: PSORIASIS
     Route: 061
  12. BONALFA [Concomitant]
     Indication: PSORIASIS
     Route: 061
  13. LIDOMEX [Concomitant]
     Indication: PSORIASIS
     Route: 061
  14. TOPSYM [Concomitant]
     Indication: PSORIASIS
     Route: 061
  15. OXAROL [Concomitant]
     Indication: PSORIASIS
     Route: 061
  16. OLMETEC [Concomitant]
     Route: 048
  17. LIPITOR [Concomitant]
     Route: 048
  18. CORTRIL [Concomitant]
     Route: 048
  19. THYRADIN S [Concomitant]
     Route: 048
  20. METHADERM [Concomitant]
     Indication: PSORIASIS
     Route: 061
  21. SEPAZON [Concomitant]
     Route: 048
     Dates: start: 20120120
  22. ERISPAN [Concomitant]
     Route: 048
     Dates: start: 20120120
  23. AMLODIN [Concomitant]
     Route: 048
     Dates: start: 20120227
  24. PAXIL [Concomitant]
     Route: 048
     Dates: start: 20120120

REACTIONS (1)
  - Dental fistula [Recovered/Resolved]
